FAERS Safety Report 9397047 (Version 5)
Quarter: 2013Q4

REPORT INFORMATION
  Report Type: Spontaneous
  Country: US (occurrence: US)
  Receive Date: 20130712
  Receipt Date: 20131004
  Transmission Date: 20140711
  Serious: Yes (Hospitalization, Other)
  Sender: FDA-Public Use
  Company Number: US-PFIZER INC-2013168878

PATIENT
  Age: 73 Year
  Sex: Female
  Weight: 61.68 kg

DRUGS (28)
  1. SUTENT [Suspect]
     Indication: PANCREATIC NEUROENDOCRINE TUMOUR
     Dosage: 25 MG, 1X/DAY
     Route: 048
     Dates: start: 20130511, end: 20130924
  2. PANTOPRAZOLE [Concomitant]
     Dosage: UNK
  3. FENTANYL [Concomitant]
     Dosage: UNK
     Route: 062
  4. FENTANYL [Concomitant]
     Dosage: 100 UG, UNK
  5. FENTANYL [Concomitant]
     Dosage: 12MCG/HR, Q72H
     Route: 062
  6. OXYCODONE [Concomitant]
     Indication: BREAKTHROUGH PAIN
     Dosage: 5 MG, Q3-4H PRN
     Route: 048
  7. DIGOXIN [Concomitant]
     Dosage: UNK
  8. MIRALAX [Concomitant]
     Dosage: UNK
  9. LACTULOSE [Concomitant]
     Dosage: UNK, AS NEEDED (PRN)
  10. INSULIN [Concomitant]
     Dosage: UNK
  11. NOVOLOG INSULIN [Concomitant]
     Dosage: UNK
  12. RITALIN [Concomitant]
     Dosage: UNK
  13. MEGESTROL ACETATE [Concomitant]
     Dosage: 800 MG, 1X/DAY
     Route: 048
  14. ALLOPURINOL [Concomitant]
     Dosage: 300 MG, AS NEEDED
     Route: 048
  15. CARDIZEM [Concomitant]
     Dosage: 120 MG, 1X/DAY
  16. CHLORZOXAZONE [Concomitant]
     Dosage: 500 MG, 3X/DAY
     Route: 048
  17. COLACE [Concomitant]
     Dosage: 100 MG, BID PRN
     Route: 048
  18. ENALAPRIL MALEATE [Concomitant]
     Dosage: 5 MG, 1X/DAY
     Route: 048
  19. LANTUS [Concomitant]
     Dosage: 20 IU, UNK
     Route: 058
  20. METOPROLOL TARTRATE [Concomitant]
     Dosage: 50 MG, 2X/DAY
     Route: 048
  21. NOVOLOG [Concomitant]
     Dosage: 25 IU, UNK
     Route: 058
  22. OMEPRAZOLE [Concomitant]
     Dosage: 20 MG, 1X/DAY
     Route: 048
  23. PREDNISONE [Concomitant]
     Dosage: 5 MG, EVERY OTHER DAY
     Route: 048
  24. SUCRALFATE [Concomitant]
     Dosage: 1 G, 4X/DAY
     Route: 048
  25. DUKE^S MAGIC MOUTHWASH [Concomitant]
     Dosage: UNK
  26. LASIX [Concomitant]
     Dosage: 20 MG, UNK
  27. CELEXA [Concomitant]
     Indication: ANXIETY
     Dosage: UNK
  28. CELEXA [Concomitant]
     Indication: DEPRESSION

REACTIONS (20)
  - Cardiac failure congestive [Unknown]
  - Blood potassium decreased [Unknown]
  - Hemiparesis [Unknown]
  - Abasia [Unknown]
  - Disease progression [Unknown]
  - Pancreatic neuroendocrine tumour [Unknown]
  - Activities of daily living impaired [Unknown]
  - Alopecia [Unknown]
  - Oral herpes [Unknown]
  - Temperature intolerance [Unknown]
  - Fall [Unknown]
  - Head injury [Unknown]
  - Blood glucose decreased [Unknown]
  - Dysgeusia [Unknown]
  - Rash macular [Unknown]
  - Pigmentation disorder [Unknown]
  - Fluid retention [Unknown]
  - Productive cough [Unknown]
  - Decubitus ulcer [Recovering/Resolving]
  - Stomatitis [Recovered/Resolved]
